FAERS Safety Report 8849830 (Version 2)
Quarter: 2015Q3

REPORT INFORMATION
  Report Type: Report from Study
  Country: US (occurrence: US)
  Receive Date: 20121019
  Receipt Date: 20150703
  Transmission Date: 20151125
  Serious: Yes (Death, Other)
  Sender: FDA-Public Use
  Company Number: US-ROCHE-1133350

PATIENT
  Age: 53 Year
  Sex: Female

DRUGS (44)
  1. FASLODEX [Concomitant]
     Active Substance: FULVESTRANT
     Route: 065
     Dates: start: 20031111
  2. BELLERGAL-S [Concomitant]
     Active Substance: BELLADONNA\ERGOTAMINE TARTRATE\PHENOBARBITAL
  3. CIMETIDINE HCL [Concomitant]
     Route: 065
  4. BENADRYL [Concomitant]
     Active Substance: DIPHENHYDRAMINE HYDROCHLORIDE
     Route: 065
  5. ATIVAN [Concomitant]
     Active Substance: LORAZEPAM
     Route: 065
  6. DECADRON [Concomitant]
     Active Substance: DEXAMETHASONE
     Route: 065
  7. INFLUENZA TYPE A + B VACCINE [Concomitant]
     Route: 065
  8. NAVELBINE [Concomitant]
     Active Substance: VINORELBINE TARTRATE
     Route: 065
     Dates: start: 200408
  9. DYAZIDE [Concomitant]
     Active Substance: HYDROCHLOROTHIAZIDE\TRIAMTERENE
     Route: 065
  10. ZOMETA [Suspect]
     Active Substance: ZOLEDRONIC ACID
     Indication: PRODUCT USED FOR UNKNOWN INDICATION
     Route: 065
     Dates: start: 20040608
  11. CYTOXAN [Concomitant]
     Active Substance: CYCLOPHOSPHAMIDE
  12. AREDIA [Concomitant]
     Active Substance: PAMIDRONATE DISODIUM
  13. GEMZAR [Concomitant]
     Active Substance: GEMCITABINE HYDROCHLORIDE
     Route: 065
     Dates: start: 200001, end: 200102
  14. ABRAXANE [Concomitant]
     Active Substance: PACLITAXEL
     Route: 065
     Dates: start: 20050118
  15. DECADRON [Concomitant]
     Active Substance: DEXAMETHASONE
     Route: 065
  16. AREDIA [Concomitant]
     Active Substance: PAMIDRONATE DISODIUM
     Route: 065
     Dates: start: 20030408
  17. AREDIA [Concomitant]
     Active Substance: PAMIDRONATE DISODIUM
     Route: 065
  18. ADVIL [Concomitant]
     Active Substance: IBUPROFEN
  19. ADRIAMYCIN [Concomitant]
     Active Substance: DOXORUBICIN HYDROCHLORIDE
  20. AROMASIN [Concomitant]
     Active Substance: EXEMESTANE
     Route: 065
     Dates: start: 20021010, end: 20031111
  21. TAXOL [Concomitant]
     Active Substance: PACLITAXEL
     Route: 065
     Dates: start: 19990129
  22. COUMADIN [Concomitant]
     Active Substance: WARFARIN SODIUM
     Route: 065
     Dates: start: 19990222, end: 19990325
  23. TYLENOL [Concomitant]
     Active Substance: ACETAMINOPHEN
     Route: 065
  24. PEGFILGRASTIM [Concomitant]
     Active Substance: PEGFILGRASTIM
     Route: 065
  25. DECADRON [Concomitant]
     Active Substance: DEXAMETHASONE
     Route: 065
  26. 5-FLUOROURACIL [Concomitant]
     Active Substance: FLUOROURACIL
     Route: 065
  27. VINORELBINE [Concomitant]
     Active Substance: VINORELBINE\VINORELBINE TARTRATE
     Route: 065
  28. ATIVAN [Concomitant]
     Active Substance: LORAZEPAM
     Route: 065
  29. ZOLEDRONIC ACID [Concomitant]
     Active Substance: ZOLEDRONIC ACID
     Route: 065
  30. MITOXANTRONE [Concomitant]
     Active Substance: MITOXANTRONE HYDROCHLORIDE
     Route: 065
     Dates: start: 20040224
  31. AVASTIN [Suspect]
     Active Substance: BEVACIZUMAB
     Indication: BREAST CANCER FEMALE
     Route: 042
     Dates: start: 20050524
  32. VINORELBINE [Concomitant]
     Active Substance: VINORELBINE\VINORELBINE TARTRATE
     Route: 065
  33. ARANESP [Concomitant]
     Active Substance: DARBEPOETIN ALFA
     Route: 065
  34. COMPAZINE [Concomitant]
     Active Substance: PROCHLORPERAZINE MALEATE
     Indication: NAUSEA
     Route: 065
  35. MEGACE [Concomitant]
     Active Substance: MEGESTROL ACETATE
     Route: 065
     Dates: start: 20040608
  36. GRANISETRON [Concomitant]
     Active Substance: GRANISETRON
     Route: 065
  37. XELODA [Suspect]
     Active Substance: CAPECITABINE
     Indication: BREAST CANCER FEMALE
     Dosage: 2 WEEKS ON AND 2 WEEKS OFF
     Route: 065
     Dates: start: 20030408, end: 20031111
  38. DEXAMETHASONE. [Concomitant]
     Active Substance: DEXAMETHASONE
     Route: 065
  39. TAMOXIFEN [Concomitant]
     Active Substance: TAMOXIFEN
     Route: 065
     Dates: start: 19930806
  40. TAXOL [Concomitant]
     Active Substance: PACLITAXEL
     Dosage: DOSAGE LOWERED
     Route: 065
     Dates: start: 19990422, end: 19990701
  41. TAXOL [Concomitant]
     Active Substance: PACLITAXEL
     Route: 065
     Dates: start: 19990112
  42. TAXOL [Concomitant]
     Active Substance: PACLITAXEL
     Route: 065
  43. LEUCOVORIN. [Concomitant]
     Active Substance: LEUCOVORIN
     Route: 065
     Dates: start: 20040224
  44. 5-FLUOROURACIL [Concomitant]
     Active Substance: FLUOROURACIL
     Route: 065
     Dates: start: 20040224

REACTIONS (30)
  - Abdominal tenderness [Unknown]
  - Bone disorder [Unknown]
  - Hand dermatitis [Unknown]
  - Death [Fatal]
  - Back pain [Unknown]
  - Arthralgia [Unknown]
  - Joint range of motion decreased [Unknown]
  - Fatigue [Unknown]
  - Musculoskeletal pain [Unknown]
  - Dyspnoea exertional [Unknown]
  - Road traffic accident [Unknown]
  - Off label use [Unknown]
  - Diarrhoea [Unknown]
  - Neck pain [Unknown]
  - Pleural effusion [Unknown]
  - Hepatic neoplasm [Unknown]
  - Metastases to bone [Unknown]
  - Headache [Unknown]
  - Neuropathy peripheral [Unknown]
  - Skin discolouration [Unknown]
  - Disease progression [Unknown]
  - Bursitis [Unknown]
  - Metastases to lymph nodes [Unknown]
  - Haemorrhage subcutaneous [Unknown]
  - Lymphadenopathy [Unknown]
  - Metastases to liver [Unknown]
  - Hypertension [Unknown]
  - Jaw disorder [Unknown]
  - Abdominal pain [Unknown]
  - Feeling abnormal [Unknown]

NARRATIVE: CASE EVENT DATE: 200311
